FAERS Safety Report 11118780 (Version 1)
Quarter: 2015Q2

REPORT INFORMATION
  Report Type: Spontaneous
  Country: FR (occurrence: FR)
  Receive Date: 20150518
  Receipt Date: 20150518
  Transmission Date: 20150821
  Serious: Yes (Life-Threatening, Hospitalization)
  Sender: FDA-Public Use
  Company Number: FR-PFIZER INC-2015162962

PATIENT
  Age: 51 Year
  Sex: Female

DRUGS (5)
  1. LYRICA [Suspect]
     Active Substance: PREGABALIN
     Dosage: 4200 MG, SINGLE
     Route: 048
     Dates: start: 20150320, end: 20150320
  2. NEURONTIN [Suspect]
     Active Substance: GABAPENTIN
     Dosage: 6000 MG, SINGLE
     Route: 048
     Dates: start: 20150320, end: 20150320
  3. CLOMIPRAMINE TEVA [Suspect]
     Active Substance: CLOMIPRAMINE
     Dosage: 250 MG, SINGLE
     Route: 048
     Dates: start: 20150320, end: 20150320
  4. EPITOMAX [Suspect]
     Active Substance: TOPIRAMATE
     Dosage: 700 MG, SINGLE
     Route: 048
     Dates: start: 20150320, end: 20150320
  5. VENLAFAXINE HCL [Suspect]
     Active Substance: VENLAFAXINE HYDROCHLORIDE
     Dosage: 750 MG, SINGLE
     Route: 048
     Dates: start: 20150320, end: 20150320

REACTIONS (5)
  - Headache [Unknown]
  - Intentional overdose [Unknown]
  - Poisoning deliberate [Recovered/Resolved]
  - Hypotension [Recovered/Resolved]
  - Sensorimotor disorder [Unknown]

NARRATIVE: CASE EVENT DATE: 20150320
